FAERS Safety Report 7710796-9 (Version None)
Quarter: 2011Q3

REPORT INFORMATION
  Report Type: 
  Country: None (occurrence: None)
  Receive Date: 20110825
  Receipt Date: 20110725
  Transmission Date: 20111222
  Serious: No
  Sender: FDA-Public Use
  Company Number: US-BAYER-2011-066849

PATIENT
  Age: 14 Year
  Sex: Female
  Weight: 59 kg

DRUGS (1)
  1. ALEVE (CAPLET) [Suspect]
     Dosage: 1 DF, PRN
     Route: 048
     Dates: start: 20110621, end: 20110621

REACTIONS (1)
  - THROAT IRRITATION [None]
